FAERS Safety Report 8084276-8 (Version None)
Quarter: 2012Q1

REPORT INFORMATION
  Report Type: 
  Country: None (occurrence: None)
  Receive Date: 20120128
  Receipt Date: 20110305
  Transmission Date: 20120608
  Serious: No
  Sender: FDA-Public Use
  Company Number: US-ABBOTT-11P-163-0709734-00

PATIENT
  Age: 52 Year
  Sex: Male

DRUGS (5)
  1. HUMIRA [Suspect]
     Indication: CROHN'S DISEASE
     Dates: start: 20100601
  2. LIALDA [Concomitant]
     Indication: COLITIS ULCERATIVE
  3. PROCHLORPERAZINE [Concomitant]
     Indication: NAUSEA
  4. PRILOSEC [Concomitant]
     Indication: PRODUCT USED FOR UNKNOWN INDICATION
     Dosage: 30 MINUTES BEFORE BREAKFAST
  5. RELPAX [Concomitant]
     Indication: MIGRAINE

REACTIONS (4)
  - NASOPHARYNGITIS [None]
  - DIZZINESS [None]
  - COUGH [None]
  - SINUS CONGESTION [None]
